FAERS Safety Report 20674673 (Version 1)
Quarter: 2022Q2

REPORT INFORMATION
  Report Type: Report from Study
  Country: KR (occurrence: KR)
  Receive Date: 20220405
  Receipt Date: 20220405
  Transmission Date: 20220720
  Serious: Yes (Other)
  Sender: FDA-Public Use
  Company Number: KR-JNJFOC-20210741639

PATIENT
  Age: 26 Year
  Sex: Female

DRUGS (34)
  1. STELARA [Suspect]
     Active Substance: USTEKINUMAB
     Indication: Crohn^s disease
     Route: 042
     Dates: start: 20210407, end: 20210407
  2. STELARA [Suspect]
     Active Substance: USTEKINUMAB
     Route: 058
     Dates: start: 20210407, end: 20210407
  3. STELARA [Suspect]
     Active Substance: USTEKINUMAB
     Route: 058
     Dates: start: 20210707, end: 20210707
  4. STELARA [Suspect]
     Active Substance: USTEKINUMAB
     Route: 058
     Dates: start: 20210707, end: 20210707
  5. STELARA [Suspect]
     Active Substance: USTEKINUMAB
     Route: 058
     Dates: start: 20220105, end: 20220105
  6. PANTOPRAZOLE SODIUM [Concomitant]
     Active Substance: PANTOPRAZOLE SODIUM
     Indication: Gastrointestinal disorder therapy
     Route: 048
     Dates: start: 20190723, end: 20210217
  7. MOSAPRIDE [Concomitant]
     Active Substance: MOSAPRIDE
     Indication: Gastrointestinal disorder therapy
     Route: 048
     Dates: start: 20210117, end: 20210224
  8. ZANAPAM [Concomitant]
     Indication: Insomnia
     Route: 048
     Dates: start: 20210208, end: 20210331
  9. POTASSIUM CHLORIDE [Concomitant]
     Active Substance: POTASSIUM CHLORIDE
     Indication: Blood potassium
     Route: 048
     Dates: start: 20210207, end: 20210301
  10. MELATONIN [Concomitant]
     Active Substance: MELATONIN
     Indication: Insomnia
     Route: 048
     Dates: start: 20210208, end: 20210331
  11. AMITRIPTYLINE [Concomitant]
     Active Substance: AMITRIPTYLINE
     Indication: Insomnia
     Route: 042
     Dates: start: 20191210, end: 20210307
  12. HYDROCORTISONE [Concomitant]
     Active Substance: HYDROCORTISONE
     Route: 042
     Dates: start: 20210217, end: 20210217
  13. HYDROCORTISONE [Concomitant]
     Active Substance: HYDROCORTISONE
     Route: 042
     Dates: start: 20210218, end: 20210218
  14. HYDROCORTISONE [Concomitant]
     Active Substance: HYDROCORTISONE
     Route: 042
     Dates: start: 20210220, end: 20210220
  15. HYDROCORTISONE [Concomitant]
     Active Substance: HYDROCORTISONE
     Route: 042
     Dates: start: 20210221, end: 20210221
  16. HYDROCORTISONE [Concomitant]
     Active Substance: HYDROCORTISONE
     Route: 042
     Dates: start: 20210226, end: 20210226
  17. HYDROCORTISONE [Concomitant]
     Active Substance: HYDROCORTISONE
     Route: 042
     Dates: start: 20210527, end: 20210527
  18. HYDROCORTISONE [Concomitant]
     Active Substance: HYDROCORTISONE
     Dosage: 20/10
     Route: 042
     Dates: start: 20210303, end: 20210304
  19. HYDROCORTISONE [Concomitant]
     Active Substance: HYDROCORTISONE
     Dosage: 10/5
     Route: 042
     Dates: start: 20210317, end: 20210613
  20. HYDROCORTISONE [Concomitant]
     Active Substance: HYDROCORTISONE
     Dosage: 10/5
     Route: 042
     Dates: start: 20210614, end: 20210713
  21. RISPERIDONE [Concomitant]
     Active Substance: RISPERIDONE
     Indication: Insomnia
     Route: 048
     Dates: start: 20210401, end: 20210415
  22. BENZTROPINE [Concomitant]
     Active Substance: BENZTROPINE
     Indication: Insomnia
     Route: 048
     Dates: start: 20210401
  23. COFEXOR [Concomitant]
     Route: 048
     Dates: start: 20210401, end: 20210602
  24. RIVOTRIL [Concomitant]
     Active Substance: CLONAZEPAM
     Indication: Insomnia
     Route: 048
     Dates: start: 20210401
  25. MULTAPINE [Concomitant]
     Indication: Insomnia
     Route: 048
     Dates: start: 20210416
  26. BIOTOP HIGH [Concomitant]
     Route: 048
     Dates: start: 20210325, end: 20210505
  27. THIAMINE HYDROCHLORIDE [Concomitant]
     Active Substance: THIAMINE HYDROCHLORIDE
     Indication: Vitamin supplementation
     Dates: start: 20210407, end: 20210504
  28. FOLIC ACID [Concomitant]
     Active Substance: FOLIC ACID
     Indication: Vitamin supplementation
     Dates: start: 20210603, end: 20210706
  29. PROCTIN [FLUOXETINE HYDROCHLORIDE] [Concomitant]
     Indication: Insomnia
     Route: 048
     Dates: start: 20210603
  30. QUETIAPINE FUMARATE [Concomitant]
     Active Substance: QUETIAPINE FUMARATE
     Indication: Insomnia
     Route: 048
     Dates: start: 20210707
  31. MEDILAC DS [Concomitant]
     Indication: Abdominal distension
     Route: 048
     Dates: start: 20211030
  32. TRISONKIT [Concomitant]
     Indication: Ileocolostomy
     Route: 042
     Dates: start: 20211029, end: 20211101
  33. METRONIDAZOLE [Concomitant]
     Active Substance: METRONIDAZOLE
     Indication: Ileocolostomy
     Route: 042
     Dates: start: 20211029, end: 20211101
  34. ASPIRIN [Concomitant]
     Active Substance: ASPIRIN
     Indication: Diarrhoea
     Route: 048
     Dates: start: 20211118

REACTIONS (1)
  - Hepatic enzyme increased [Not Recovered/Not Resolved]

NARRATIVE: CASE EVENT DATE: 20210506
